FAERS Safety Report 9069445 (Version 1)
Quarter: 2013Q1

REPORT INFORMATION
  Report Type: Spontaneous
  Country: US (occurrence: US)
  Receive Date: 20130215
  Receipt Date: 20130215
  Transmission Date: 20140127
  Serious: Yes (Hospitalization)
  Sender: FDA-Public Use
  Company Number: US-UCBSA-078058

PATIENT
  Age: 69 Year
  Sex: Female

DRUGS (4)
  1. CIMZIA [Suspect]
     Indication: RHEUMATOID ARTHRITIS
     Dosage: LOADING DOSE
     Dates: start: 20120801, end: 20120831
  2. CIMZIA [Interacting]
     Indication: RHEUMATOID ARTHRITIS
     Dosage: MAINTAINENCE DOSE
     Dates: start: 2012
  3. DALIRESP [Interacting]
     Indication: CHRONIC OBSTRUCTIVE PULMONARY DISEASE
     Dates: start: 201212
  4. LEFLUNOMIDE [Suspect]
     Indication: RHEUMATOID ARTHRITIS
     Dosage: 20 MG
     Dates: start: 20120801, end: 20121127

REACTIONS (4)
  - Chronic obstructive pulmonary disease [Recovered/Resolved]
  - Alopecia [Unknown]
  - Rheumatoid arthritis [Not Recovered/Not Resolved]
  - Drug interaction [Not Recovered/Not Resolved]
